FAERS Safety Report 8165354-1 (Version None)
Quarter: 2012Q1

REPORT INFORMATION
  Report Type: 
  Country: None (occurrence: None)
  Receive Date: 20120227
  Receipt Date: 20110418
  Transmission Date: 20120608
  Serious: No
  Sender: FDA-Public Use
  Company Number: -MYLANLABS-2011S1008157

PATIENT
  Sex: Female

DRUGS (1)
  1. METFORMIN HCL [Suspect]
     Route: 048

REACTIONS (3)
  - GLOSSODYNIA [None]
  - DYSGEUSIA [None]
  - FLUSHING [None]
